FAERS Safety Report 15941669 (Version 1)
Quarter: 2019Q1

REPORT INFORMATION
  Report Type: Spontaneous
  Country: US (occurrence: US)
  Receive Date: 20190209
  Receipt Date: 20190209
  Transmission Date: 20190417
  Serious: No
  Sender: FDA-Public Use
  Company Number: None

PATIENT
  Age: 26 Year
  Sex: Female
  Weight: 81 kg

DRUGS (1)
  1. CLINDAMYCIN HCL 300 MG CAPSULE [Suspect]
     Active Substance: CLINDAMYCIN HYDROCHLORIDE
     Indication: SKIN INFECTION
     Dosage: ?          QUANTITY:1 CAPSULE(S);?
     Route: 048
     Dates: start: 20190106, end: 20190113

REACTIONS (7)
  - Rash pruritic [None]
  - Haematochezia [None]
  - Mucous stools [None]
  - Nausea [None]
  - Dyspepsia [None]
  - Diarrhoea [None]
  - Rash erythematous [None]

NARRATIVE: CASE EVENT DATE: 20190203
